FAERS Safety Report 12680501 (Version 1)
Quarter: 2016Q3

REPORT INFORMATION
  Report Type: Report from Study
  Country: BR (occurrence: BR)
  Receive Date: 20160824
  Receipt Date: 20160824
  Transmission Date: 20161109
  Serious: Yes (Other)
  Sender: FDA-Public Use
  Company Number: PHHY2016BR115621

PATIENT
  Sex: Female

DRUGS (1)
  1. EXFORGE HCT [Suspect]
     Active Substance: AMLODIPINE BESYLATE\HYDROCHLOROTHIAZIDE\VALSARTAN
     Indication: BLOOD PRESSURE DECREASED
     Dosage: 1 DF(AMLODIPINE 5MG, HYDROCHLOROTHIAZIDE 12.5 MG, VALSARTAN 160 MG)  UNK
     Route: 048

REACTIONS (2)
  - Drug prescribing error [Unknown]
  - Drug dependence [Unknown]
